FAERS Safety Report 23369604 (Version 1)
Quarter: 2024Q1

REPORT INFORMATION
  Report Type: Report from Study
  Country: US (occurrence: None)
  Receive Date: 20240105
  Receipt Date: 20240105
  Transmission Date: 20240410
  Serious: Yes (Other)
  Sender: FDA-Public Use
  Company Number: 2024A002932

PATIENT
  Age: 29642 Day
  Sex: Female

DRUGS (13)
  1. TAGRISSO [Suspect]
     Active Substance: OSIMERTINIB
     Indication: Non-small cell lung cancer stage IV
     Route: 048
     Dates: start: 20230916
  2. MEGESTROL [Concomitant]
     Active Substance: MEGESTROL
  3. MEMANTINE [Concomitant]
     Active Substance: MEMANTINE
  4. LORAZEPAM [Concomitant]
     Active Substance: LORAZEPAM
  5. SENNA [Concomitant]
     Active Substance: SENNA LEAF\SENNOSIDES\SENNOSIDES A AND B
  6. MORPHINE [Concomitant]
     Active Substance: MORPHINE
  7. IBUPROFEN [Concomitant]
     Active Substance: IBUPROFEN
  8. TYLENOL [Concomitant]
     Active Substance: ACETAMINOPHEN
  9. BENZONATATE [Concomitant]
     Active Substance: BENZONATATE
  10. SIMVASTATIN [Concomitant]
     Active Substance: SIMVASTATIN
  11. ALBUTEROL [Concomitant]
     Active Substance: ALBUTEROL
  12. VITAMINS [Concomitant]
     Active Substance: VITAMINS
  13. ZOFRAN [Concomitant]
     Active Substance: ONDANSETRON HYDROCHLORIDE

REACTIONS (3)
  - Pleural effusion [Not Recovered/Not Resolved]
  - Cough [Not Recovered/Not Resolved]
  - Nasopharyngitis [Not Recovered/Not Resolved]

NARRATIVE: CASE EVENT DATE: 20231228
